FAERS Safety Report 8862477 (Version 1)
Quarter: 2012Q4

REPORT INFORMATION
  Report Type: 
  Country: US (occurrence: US)
  Receive Date: 20121026
  Receipt Date: 20121026
  Transmission Date: 20130627
  Serious: No
  Sender: FDA-Public Use
  Company Number: US-ALLERGAN-1202433US

PATIENT
  Age: 77 Year
  Sex: Female

DRUGS (1)
  1. ALPHAGAN [Suspect]
     Indication: DRUG USE FOR UNKNOWN INDICATION
     Dosage: UNK
     Dates: start: 2000

REACTIONS (1)
  - Drug effect increased [Recovered/Resolved]
